FAERS Safety Report 17393892 (Version 2)
Quarter: 2020Q1

REPORT INFORMATION
  Report Type: Spontaneous
  Country: US (occurrence: US)
  Receive Date: 20200210
  Receipt Date: 20200305
  Transmission Date: 20200409
  Serious: No
  Sender: FDA-Public Use
  Company Number: US-SHIRE-US202004627

PATIENT
  Sex: Female
  Weight: 45.35 kg

DRUGS (1)
  1. GATTEX [Suspect]
     Active Substance: TEDUGLUTIDE\WATER
     Indication: PRODUCT USED FOR UNKNOWN INDICATION
     Dosage: 0.26 UNKNOWN, 1X/DAY:QD
     Route: 058
     Dates: start: 20191219, end: 20200218

REACTIONS (1)
  - Drug ineffective [Not Recovered/Not Resolved]
